FAERS Safety Report 4570675-5 (Version None)
Quarter: 2005Q1

REPORT INFORMATION
  Report Type: 
  Country: None (occurrence: None)
  Receive Date: 20050204
  Receipt Date: 20050202
  Transmission Date: 20050727
  Serious: Yes (Death)
  Sender: FDA-Public Use
  Company Number: PHHO2005JP02090

PATIENT
  Age: 72 Year
  Sex: Male
  Weight: 57 kg

DRUGS (10)
  1. NEORAL [Suspect]
     Indication: NEPHROTIC SYNDROME
     Dosage: 150 MG/DAY
     Route: 048
     Dates: start: 20021112, end: 20021227
  2. NEORAL [Suspect]
     Dosage: 100 MG/DAY
     Route: 048
     Dates: start: 20021228, end: 20030104
  3. PREDONINE [Suspect]
     Indication: NEPHROTIC SYNDROME
     Dosage: 30 MG/DAY
     Route: 048
     Dates: start: 20021112, end: 20021212
  4. PREDONINE [Suspect]
     Dosage: 25 MG/DAY
     Route: 048
     Dates: start: 20021213, end: 20030103
  5. PREDONINE [Suspect]
     Dosage: 20 MG/DAY
     Route: 048
     Dates: start: 20030104, end: 20030104
  6. DIOVAN [Concomitant]
     Dates: start: 20021112, end: 20030105
  7. ACECOL [Concomitant]
     Dates: start: 20021112, end: 20030105
  8. NORVASC [Concomitant]
     Dates: start: 20021112, end: 20030105
  9. LIPITOR [Concomitant]
     Dates: start: 20021112, end: 20030105
  10. LASIX [Concomitant]
     Dates: start: 20021112, end: 20030105

REACTIONS (2)
  - PNEUMONIA [None]
  - RESPIRATORY FAILURE [None]
